FAERS Safety Report 20525580 (Version 16)
Quarter: 2023Q1

REPORT INFORMATION
  Report Type: Report from Study
  Country: US (occurrence: US)
  Receive Date: 20220228
  Receipt Date: 20230315
  Transmission Date: 20230417
  Serious: Yes (Other)
  Sender: FDA-Public Use
  Company Number: US-BIOVITRUM-2022US02681

PATIENT
  Age: 68 Year
  Sex: Female

DRUGS (9)
  1. DOPTELET [Suspect]
     Active Substance: AVATROMBOPAG MALEATE
     Indication: Thrombocytopenia
     Dosage: 40MG 3 TIMES A WEEK 20MG ONCE A WEEK
     Route: 048
     Dates: start: 20211027
  2. DOPTELET [Suspect]
     Active Substance: AVATROMBOPAG MALEATE
     Dosage: 40MG MONDAY, WEDNESDAY, FRIDAY; 20MG OTHER DAYS OF THE WEEK
     Route: 048
     Dates: start: 20220211
  3. DOPTELET [Suspect]
     Active Substance: AVATROMBOPAG MALEATE
     Route: 048
     Dates: start: 20220211
  4. DOPTELET [Suspect]
     Active Substance: AVATROMBOPAG MALEATE
     Dosage: 40MG MONDAY, WEDNESDAY, FRIDAY; 20MG OTHER DAYS OF THE WEEK
     Route: 048
     Dates: start: 20220211
  5. DOPTELET [Suspect]
     Active Substance: AVATROMBOPAG MALEATE
     Dosage: DOSE UNITS: 40MG / 20MG?FREQUENCY: MONDAY,WEDNESDAY,FRIDAY /SUNDAY,TUESDAY,THURSDAY,SATURDAY
     Route: 048
     Dates: start: 20220211
  6. DOPTELET [Suspect]
     Active Substance: AVATROMBOPAG MALEATE
     Dosage: 40MG 3 TIMES A WEEK 20MG ONCE A WEEK
     Route: 048
     Dates: start: 20211027
  7. DOPTELET [Suspect]
     Active Substance: AVATROMBOPAG MALEATE
     Dosage: 40MG 3 TIMES A WEEK 20MG ONCE A WEEK
     Route: 048
     Dates: start: 20211027
  8. COVID-19 VACCINE NOS [Suspect]
     Active Substance: COVID-19 VACCINE NOS
     Indication: Product used for unknown indication
     Dates: start: 20211027
  9. INFLUENZA VIRUS VACCINE [Suspect]
     Active Substance: INFLUENZA VIRUS VACCINE
     Indication: Product used for unknown indication

REACTIONS (35)
  - Product dose omission issue [Unknown]
  - Glaucoma [Unknown]
  - Cataract [Unknown]
  - Breast cancer [Unknown]
  - Carcinoembryonic antigen increased [Unknown]
  - Laboratory test abnormal [Unknown]
  - Platelet count increased [Unknown]
  - Pain in extremity [Recovering/Resolving]
  - Diarrhoea [Unknown]
  - Muscle spasms [Recovered/Resolved]
  - Energy increased [Unknown]
  - Headache [Unknown]
  - Vision blurred [Unknown]
  - Abdominal discomfort [Unknown]
  - Seasonal allergy [Unknown]
  - Contusion [Unknown]
  - Myalgia [Unknown]
  - Fibromyalgia [Unknown]
  - Skin atrophy [Unknown]
  - Hypersomnia [Unknown]
  - Sleep disorder [Unknown]
  - Fatigue [Unknown]
  - Platelet count decreased [Unknown]
  - Asthenia [Unknown]
  - Crying [Unknown]
  - Platelet count abnormal [Unknown]
  - Cough [Unknown]
  - Insomnia [Unknown]
  - Dry eye [Unknown]
  - Depressed mood [Unknown]
  - Somnolence [Unknown]
  - Loss of personal independence in daily activities [Unknown]
  - Illness [Unknown]
  - Weight increased [Unknown]
  - Decreased appetite [Unknown]

NARRATIVE: CASE EVENT DATE: 20220101
